FAERS Safety Report 10715534 (Version 1)
Quarter: 2015Q1

REPORT INFORMATION
  Report Type: Report from Study
  Country: US (occurrence: US)
  Receive Date: 20150116
  Receipt Date: 20150116
  Transmission Date: 20150721
  Serious: Yes (Other)
  Sender: FDA-Public Use
  Company Number: US-BIOGENIDEC-2015BI002989

PATIENT
  Age: 45 Year
  Sex: Female

DRUGS (17)
  1. AMPYRA [Concomitant]
     Active Substance: DALFAMPRIDINE
  2. OXYCODONE [Concomitant]
     Active Substance: OXYCODONE
  3. LYRICA [Concomitant]
     Active Substance: PREGABALIN
  4. PLAVIX [Concomitant]
     Active Substance: CLOPIDOGREL BISULFATE
  5. CYMBALTA [Concomitant]
     Active Substance: DULOXETINE HYDROCHLORIDE
  6. FENTANYL TRANSDERMAL SYSTEM [Concomitant]
     Active Substance: FENTANYL
  7. HUMALOG [Concomitant]
     Active Substance: INSULIN LISPRO
  8. METOPROLOL [Concomitant]
     Active Substance: METOPROLOL
  9. STRATTERA [Concomitant]
     Active Substance: ATOMOXETINE HYDROCHLORIDE
  10. TECFIDERA [Suspect]
     Active Substance: DIMETHYL FUMARATE
     Indication: MULTIPLE SCLEROSIS
     Route: 048
     Dates: start: 2013
  11. ASPIRIN. [Concomitant]
     Active Substance: ASPIRIN
  12. CYCLOBENZAPRINE [Concomitant]
     Active Substance: CYCLOBENZAPRINE
  13. AMPYRA [Concomitant]
     Active Substance: DALFAMPRIDINE
  14. AMPYRA [Concomitant]
     Active Substance: DALFAMPRIDINE
  15. DIAZEPAM. [Concomitant]
     Active Substance: DIAZEPAM
  16. LANTUS [Concomitant]
     Active Substance: INSULIN GLARGINE
  17. VITAMIN D [Concomitant]
     Active Substance: CHOLECALCIFEROL

REACTIONS (5)
  - Nausea [Not Recovered/Not Resolved]
  - Chest discomfort [Not Recovered/Not Resolved]
  - Adverse drug reaction [Unknown]
  - Coronary artery occlusion [Not Recovered/Not Resolved]
  - Peripheral arterial occlusive disease [Unknown]

NARRATIVE: CASE EVENT DATE: 2014
